FAERS Safety Report 4289677-1 (Version None)
Quarter: 2004Q1

REPORT INFORMATION
  Report Type: 
  Country: None (occurrence: None)
  Receive Date: 20040203
  Receipt Date: 20030624
  Transmission Date: 20041129
  Serious: Yes (Other)
  Sender: FDA-Public Use
  Company Number: 200319613BWH

PATIENT
  Age: 57 Year
  Sex: Male
  Weight: 86.1834 kg

DRUGS (4)
  1. AVELOX [Suspect]
     Indication: NASOPHARYNGITIS
     Dosage: 400 MG, ONCE, ORAL
     Route: 048
     Dates: start: 20030623
  2. AVELOX [Suspect]
     Indication: UPPER RESPIRATORY TRACT INFECTION
     Dosage: 400 MG, ONCE, ORAL
     Route: 048
     Dates: start: 20030623
  3. PRILOSEC [Concomitant]
  4. TEQUIN [Concomitant]

REACTIONS (5)
  - ERYTHEMA [None]
  - HYPERSENSITIVITY [None]
  - ORAL DISCOMFORT [None]
  - PRURITUS [None]
  - RASH GENERALISED [None]
